FAERS Safety Report 13351864 (Version 1)
Quarter: 2017Q1

REPORT INFORMATION
  Report Type: Spontaneous
  Country: US (occurrence: US)
  Receive Date: 20170320
  Receipt Date: 20170320
  Transmission Date: 20170429
  Serious: No
  Sender: FDA-Public Use
  Company Number: US-SA-2016SA157880

PATIENT
  Age: 74 Year
  Sex: Male

DRUGS (2)
  1. NASACORT ALLERGY 24HR [Suspect]
     Active Substance: TRIAMCINOLONE ACETONIDE
     Indication: SNEEZING
     Dosage: TWO SQUIRTS IN EACH NOSTRIL QD MORE THAN 2 WEEKS AGO
     Route: 045
     Dates: end: 20160823
  2. NASACORT ALLERGY 24HR [Suspect]
     Active Substance: TRIAMCINOLONE ACETONIDE
     Indication: RHINORRHOEA
     Dosage: TWO SQUIRTS IN EACH NOSTRIL QD MORE THAN 2 WEEKS AGO
     Route: 045
     Dates: end: 20160823

REACTIONS (3)
  - Drug ineffective [Unknown]
  - Sneezing [Unknown]
  - Rhinorrhoea [Unknown]
